FAERS Safety Report 21030331 (Version 1)
Quarter: 2022Q3

REPORT INFORMATION
  Report Type: Spontaneous
  Country: US (occurrence: None)
  Receive Date: 20220701
  Receipt Date: 20220701
  Transmission Date: 20221026
  Serious: No
  Sender: FDA-Public Use
  Company Number: US-ROCHE-2969484

PATIENT
  Age: 27 Year
  Sex: Female

DRUGS (3)
  1. ACTEMRA [Suspect]
     Active Substance: TOCILIZUMAB
     Indication: Product used for unknown indication
     Dosage: PFS 162MG/0.9ML
     Route: 058
     Dates: start: 20210704
  2. ACTEMRA [Suspect]
     Active Substance: TOCILIZUMAB
  3. ACTEMRA [Suspect]
     Active Substance: TOCILIZUMAB

REACTIONS (4)
  - Product physical issue [Unknown]
  - Product storage error [Unknown]
  - Product temperature excursion issue [Unknown]
  - No adverse event [Unknown]

NARRATIVE: CASE EVENT DATE: 20211126
